FAERS Safety Report 20178894 (Version 2)
Quarter: 2022Q2

REPORT INFORMATION
  Report Type: Spontaneous
  Country: GB (occurrence: GB)
  Receive Date: 20211214
  Receipt Date: 20220401
  Transmission Date: 20220721
  Serious: Yes (Other)
  Sender: FDA-Public Use
  Company Number: GB-NOVOPROD-874500

PATIENT
  Age: 13 Year
  Sex: Male

DRUGS (2)
  1. ESPEROCT [Suspect]
     Active Substance: ANTIHEMOPHILIC FACTOR, HUMAN RECOMBINANT
     Dosage: TWICE WEEKLY DOSING WITH 72 HR TROUGH LEVEL 0.04IU/ML
     Route: 065
     Dates: end: 20211109
  2. ESPEROCT [Suspect]
     Active Substance: ANTIHEMOPHILIC FACTOR, HUMAN RECOMBINANT
     Indication: Product used for unknown indication
     Dosage: UNK(EVERY 4 DAYS)
     Route: 065
     Dates: start: 20211101

REACTIONS (4)
  - Coagulation factor VIII level decreased [Unknown]
  - Anti-polyethylene glycol antibody present [Unknown]
  - Haemorrhage [Recovered/Resolved]
  - Peripheral swelling [Unknown]

NARRATIVE: CASE EVENT DATE: 20211109
